FAERS Safety Report 22234241 (Version 2)
Quarter: 2023Q2

REPORT INFORMATION
  Report Type: Spontaneous
  Country: US (occurrence: US)
  Receive Date: 20230420
  Receipt Date: 20230504
  Transmission Date: 20230722
  Serious: No
  Sender: FDA-Public Use
  Company Number: US-CHEMOCENTRYX, INC.-2022USCCXI0485

PATIENT
  Age: 51 Year
  Sex: Male
  Weight: 79.365 kg

DRUGS (12)
  1. TAVNEOS [Suspect]
     Active Substance: AVACOPAN
     Indication: Arteritis
     Dosage: 30 MILLIGRAM, QD
     Route: 048
     Dates: start: 20220817
  2. TAVNEOS [Suspect]
     Active Substance: AVACOPAN
     Indication: Arthritis
     Dosage: 30 MILLIGRAM, BID
     Route: 048
     Dates: start: 202208
  3. TAVNEOS [Suspect]
     Active Substance: AVACOPAN
     Indication: Off label use
  4. IMURAN [Suspect]
     Active Substance: AZATHIOPRINE
     Indication: Product used for unknown indication
     Dosage: 150 MILLIGRAM, QD
     Route: 065
     Dates: end: 202211
  5. IMURAN [Suspect]
     Active Substance: AZATHIOPRINE
     Dosage: 100 MILLIGRAM, QD
     Route: 065
     Dates: start: 202211
  6. AMLODIPINE [Concomitant]
     Active Substance: AMLODIPINE BESYLATE
     Indication: Product used for unknown indication
     Dosage: 10 MG
     Route: 065
  7. AMLODIPINE [Concomitant]
     Active Substance: AMLODIPINE BESYLATE
     Dosage: 20 MG
     Dates: end: 202208
  8. CYCLOBENZAPRINE [Concomitant]
     Active Substance: CYCLOBENZAPRINE
     Indication: Product used for unknown indication
  9. GABAPENTIN [Concomitant]
     Active Substance: GABAPENTIN
     Indication: Product used for unknown indication
  10. CANNABIDIOL\HERBALS [Concomitant]
     Active Substance: CANNABIDIOL\HERBALS
     Indication: Product used for unknown indication
  11. ECONAZOLE NITRATE [Concomitant]
     Active Substance: ECONAZOLE NITRATE
     Indication: Product used for unknown indication
  12. NYSTATIN [Concomitant]
     Active Substance: NYSTATIN
     Indication: Product used for unknown indication

REACTIONS (6)
  - White blood cell count decreased [Not Recovered/Not Resolved]
  - Hypertension [Recovered/Resolved]
  - Alanine aminotransferase increased [Not Recovered/Not Resolved]
  - Aspartate aminotransferase increased [Not Recovered/Not Resolved]
  - Liver function test abnormal [Unknown]
  - Off label use [Unknown]

NARRATIVE: CASE EVENT DATE: 20220101
